FAERS Safety Report 15272747 (Version 1)
Quarter: 2018Q3

REPORT INFORMATION
  Report Type: Other
  Country: US (occurrence: MA)
  Receive Date: 20180813
  Receipt Date: 20180813
  Transmission Date: 20181010
  Serious: Yes (Hospitalization)
  Sender: FDA-Public Use
  Company Number: MA-BRECKENRIDGE PHARMACEUTICAL, INC.-2053641

PATIENT
  Age: 28 Year
  Sex: Female

DRUGS (1)
  1. TERBINAFINE. [Suspect]
     Active Substance: TERBINAFINE
     Indication: ONYCHOMYCOSIS
     Route: 048

REACTIONS (1)
  - Pustular psoriasis [Recovered/Resolved]
